FAERS Safety Report 6732356-9 (Version None)
Quarter: 2010Q2

REPORT INFORMATION
  Report Type: 
  Country: None (occurrence: None)
  Receive Date: 20100519
  Receipt Date: 20100514
  Transmission Date: 20101027
  Serious: Yes (Hospitalization)
  Sender: FDA-Public Use
  Company Number: US-RB-009338-10

PATIENT
  Age: 46 Year
  Sex: Male

DRUGS (2)
  1. SUBOXONE [Suspect]
     Indication: DRUG DEPENDENCE
     Dosage: DOSING DETAILS UNKNOWN
     Route: 060
     Dates: start: 20100501
  2. ALCOHOL [Suspect]
     Dosage: DOSING DETAILS UNKNOWN
     Route: 048

REACTIONS (2)
  - HEPATIC FAILURE [None]
  - SWELLING FACE [None]
